FAERS Safety Report 5694759-3 (Version None)
Quarter: 2008Q2

REPORT INFORMATION
  Report Type: 
  Country: None (occurrence: None)
  Receive Date: 20080404
  Receipt Date: 20080404
  Transmission Date: 20081010
  Serious: Yes (Hospitalization)
  Sender: FDA-Public Use
  Company Number: SE-ABBOTT-07P-150-0431283-00

PATIENT
  Age: 70 Year
  Sex: Male

DRUGS (3)
  1. ZEMPLAR [Suspect]
     Indication: HYPERPARATHYROIDISM SECONDARY
     Dosage: 5 MCG/ML, 1 ML
     Route: 050
  2. NOVOLOG MIX 70/30 [Concomitant]
     Indication: DIABETES MELLITUS
  3. NOVOLOG MIX 70/30 [Concomitant]
     Indication: DIABETES MELLITUS

REACTIONS (7)
  - CEREBROVASCULAR ACCIDENT [None]
  - DYSPNOEA [None]
  - HYPERTENSION [None]
  - IMPAIRED SELF-CARE [None]
  - NAUSEA [None]
  - PLEURAL EFFUSION [None]
  - VOMITING [None]
